FAERS Safety Report 26105914 (Version 1)
Quarter: 2025Q4

REPORT INFORMATION
  Report Type: Spontaneous
  Country: EU (occurrence: EU)
  Receive Date: 20251201
  Receipt Date: 20251201
  Transmission Date: 20260118
  Serious: Yes (Other)
  Sender: TEVA
  Company Number: None

PATIENT
  Age: 94 Year
  Sex: Female
  Weight: 51 kg

DRUGS (7)
  1. CLINDAMYCIN [Suspect]
     Active Substance: CLINDAMYCIN
     Indication: Urinary tract infection
     Dosage: UNKNOWN, BRAND NAME NOT SPECIFIED
     Route: 048
     Dates: start: 20251007, end: 20251008
  2. PANTOPRAZOLE SODIUM [Concomitant]
     Active Substance: PANTOPRAZOLE SODIUM
     Indication: Product used for unknown indication
     Dosage: TABLET MSR / BRAND NAME NOT SPECIFIED
     Route: 048
  3. CHOLECALCIFEROL [Concomitant]
     Active Substance: CHOLECALCIFEROL
     Indication: Product used for unknown indication
     Dosage: 5600IE / BRAND NAME NOT SPECIFIED
     Route: 048
  4. METOPROLOL [Concomitant]
     Active Substance: METOPROLOL
     Indication: Product used for unknown indication
     Dosage: METOPROLOL SUCCINATE TABLET MGA / BRAND NAME NOT SPECIFIED
     Route: 048
  5. CARBOMERE [Concomitant]
     Indication: Product used for unknown indication
     Dosage: CARBOMERE 980/ BRAND NAME NOT SPECIFIED, OPHTHALMIC
     Route: 065
  6. CIPROFLOXACIN [Suspect]
     Active Substance: CIPROFLOXACIN
     Indication: Urinary tract infection
     Dosage: 2 X DAILY 1 PC, BRAND NAME NOT SPECIFIED
     Route: 048
     Dates: start: 20251007
  7. BARNIDIPINE [Concomitant]
     Active Substance: BARNIDIPINE
     Indication: Product used for unknown indication
     Dosage: CAPSULE MGA / BRAND NAME NOT SPECIFIED
     Route: 048

REACTIONS (12)
  - Iron deficiency [Recovering/Resolving]
  - Hallucination [Recovering/Resolving]
  - Anaemia [Recovering/Resolving]
  - Fatigue [Not Recovered/Not Resolved]
  - Hypoxia [Recovering/Resolving]
  - Diarrhoea [Recovering/Resolving]
  - Sepsis [Recovering/Resolving]
  - Gingival erythema [Not Recovered/Not Resolved]
  - Hypotension [Recovering/Resolving]
  - Dizziness [Recovering/Resolving]
  - Confusional state [Not Recovered/Not Resolved]
  - Pyrexia [Recovering/Resolving]
